FAERS Safety Report 9107182 (Version 1)
Quarter: 2013Q1

REPORT INFORMATION
  Report Type: Spontaneous
  Country: US (occurrence: US)
  Receive Date: 20130221
  Receipt Date: 20130221
  Transmission Date: 20140127
  Serious: Yes (Other)
  Sender: FDA-Public Use
  Company Number: PHHY2013US015656

PATIENT
  Age: 19 Month
  Sex: Female

DRUGS (8)
  1. OXYMETAZOLINE [Suspect]
  2. PHENYLEPHRINE [Interacting]
  3. DIPHENHYDRAMINE [Interacting]
     Dosage: 10 MG, UNK
  4. SALBUTAMOL [Suspect]
     Route: 045
  5. HYDROCORTISONE [Concomitant]
     Dosage: 10 MG, UNK
     Route: 045
  6. MELPHALAN [Concomitant]
     Indication: RETINOBLASTOMA
  7. ASPIRIN [Concomitant]
     Dosage: 10 MG/KG, UNK
  8. HEPARIN [Concomitant]

REACTIONS (4)
  - Cerebral vasoconstriction [Recovered/Resolved]
  - Hypertension [Recovered/Resolved]
  - Vasospasm [Recovered/Resolved]
  - Drug interaction [Unknown]
